FAERS Safety Report 5218243-6 (Version None)
Quarter: 2007Q1

REPORT INFORMATION
  Report Type: 
  Country: None (occurrence: None)
  Receive Date: 20061130
  Receipt Date: 20060505
  Transmission Date: 20070707
  Serious: Yes (Other)
  Sender: FDA-Public Use
  Company Number: US_0509121537

PATIENT
  Age: 32 Year
  Sex: Female
  Weight: 156 kg

DRUGS (7)
  1. ZYPREXA [Suspect]
     Indication: DEPRESSION
     Dosage: 10 MG, ORAL
     Route: 048
     Dates: start: 19990101, end: 20010101
  2. FUROSEMIDE [Concomitant]
  3. TRAZODONE HCL [Concomitant]
  4. SEROQUEL [Concomitant]
  5. SERENTIL [Concomitant]
  6. DEPAKOTE [Concomitant]
  7. LORAZEPAM [Concomitant]

REACTIONS (6)
  - ANGINA PECTORIS [None]
  - ASTHMA [None]
  - BLOOD CHOLESTEROL ABNORMAL [None]
  - BLOOD TRIGLYCERIDES INCREASED [None]
  - CARDIAC FAILURE CONGESTIVE [None]
  - DIABETES MELLITUS NON-INSULIN-DEPENDENT [None]
